FAERS Safety Report 19920385 (Version 4)
Quarter: 2022Q1

REPORT INFORMATION
  Report Type: Spontaneous
  Country: GB (occurrence: GB)
  Receive Date: 20211005
  Receipt Date: 20220325
  Transmission Date: 20220424
  Serious: Yes (Hospitalization, Other)
  Sender: FDA-Public Use
  Company Number: GB-GLAXOSMITHKLINE-GB2020011881

PATIENT
  Age: 7 Year
  Sex: Male

DRUGS (8)
  1. DUTASTERIDE [Suspect]
     Active Substance: DUTASTERIDE
     Indication: Product used for unknown indication
     Dosage: 500 ?G, QD; 500 MG, QD; 500 ?G, QD; 500 G, QD; UNK
     Route: 065
  2. LANSOPRAZOLE [Suspect]
     Active Substance: LANSOPRAZOLE
     Indication: Gastrooesophageal reflux disease
     Dosage: 15 MG, QD; 15 MG; UNK; UNK; UNK; 2.5 MG, QD; 15 MG, QD
     Route: 065
  3. ALFUZOSIN HYDROCHLORIDE [Suspect]
     Active Substance: ALFUZOSIN HYDROCHLORIDE
     Dosage: 10 MG, QD; 10 MG, QD; 10 MG; 10 MG, QD; UNK
     Route: 065
  4. BISOPROLOL FUMARATE [Suspect]
     Active Substance: BISOPROLOL FUMARATE
     Dosage: 2.5 MG, QD; 2.5 MG, QD; 2.5 MG, QD; UNK
     Route: 065
  5. TRAMADOL HYDROCHLORIDE [Suspect]
     Active Substance: TRAMADOL HYDROCHLORIDE
     Dosage: UNK, QOD; UNK, QD; UNK, UNK, 50 MG, QD; 50 MG, QD; 100 MG, QD; 50 MG; 100 MG, QD; 100 MG, QD; 100 MG
     Route: 065
  6. DAPTOMYCIN [Suspect]
     Active Substance: DAPTOMYCIN
     Route: 042
  7. VANCOMYCIN [Suspect]
     Active Substance: VANCOMYCIN
     Route: 042
  8. ALFUZOSIN HYDROCHLORIDE EXTENDED RELEASE [Suspect]
     Active Substance: ALFUZOSIN HYDROCHLORIDE

REACTIONS (15)
  - Lower respiratory tract infection [Unknown]
  - Product dispensing error [Unknown]
  - Wrong product administered [Unknown]
  - Therapy non-responder [Unknown]
  - Expired product administered [Unknown]
  - Off label use [Unknown]
  - Malaise [Unknown]
  - Malaise [Unknown]
  - Product administration error [Unknown]
  - Drug dispensed to wrong patient [Unknown]
  - Product storage error [Unknown]
  - Wrong patient received product [Unknown]
  - Antimicrobial susceptibility test resistant [Unknown]
  - Drug ineffective for unapproved indication [Unknown]
  - Therapeutic response delayed [Unknown]
